FAERS Safety Report 7624443-8 (Version None)
Quarter: 2011Q3

REPORT INFORMATION
  Report Type: 
  Country: None (occurrence: None)
  Receive Date: 20110712
  Receipt Date: 20110628
  Transmission Date: 20111222
  Serious: Yes (Hospitalization)
  Sender: FDA-Public Use
  Company Number: 2011AM004786

PATIENT
  Age: 70 Year
  Sex: Female

DRUGS (13)
  1. SYMLIN [Suspect]
     Indication: TYPE 2 DIABETES MELLITUS
     Dosage: 120 MCG, TID, SC
     Route: 058
     Dates: start: 20060101
  2. ZANTAC [Concomitant]
  3. METFORMIN HCL [Concomitant]
  4. LISINOPRIL [Concomitant]
  5. MECLIZINE [Concomitant]
  6. DILTIAZEM [Concomitant]
  7. CELEXA [Concomitant]
  8. SIMVASTATIN [Concomitant]
  9. ZYRTEC [Concomitant]
  10. SYMLIN [Suspect]
     Indication: TYPE 2 DIABETES MELLITUS
     Dosage: 15 MCG, TID; SC
     Route: 058
  11. LANTUS [Concomitant]
  12. PLAVIX [Concomitant]
  13. NOVOLOG [Concomitant]

REACTIONS (10)
  - DRUG PRESCRIBING ERROR [None]
  - CORONARY ARTERY BYPASS [None]
  - FOOD ALLERGY [None]
  - IODINE ALLERGY [None]
  - HAEMORRHAGE INTRACRANIAL [None]
  - BLOOD POTASSIUM INCREASED [None]
  - DIZZINESS [None]
  - MALAISE [None]
  - BALANCE DISORDER [None]
  - BLOOD GLUCOSE INCREASED [None]
